FAERS Safety Report 9848161 (Version 1)
Quarter: 2013Q4

REPORT INFORMATION
  Report Type: Spontaneous
  Country: US (occurrence: None)
  Receive Date: 20131224
  Receipt Date: 20131224
  Transmission Date: 20140711
  Serious: Yes (Life-Threatening)
  Sender: FDA-Public Use
  Company Number: PHEH2013US018603

PATIENT
  Age: 81 Year
  Sex: Female

DRUGS (2)
  1. AFINITOR (RAD) UNKNOWN [Suspect]
     Indication: BREAST CANCER
  2. EXEMESTANE [Suspect]

REACTIONS (3)
  - Generalised oedema [None]
  - Periorbital oedema [None]
  - Pruritus [None]
